FAERS Safety Report 6381064-5 (Version None)
Quarter: 2009Q3

REPORT INFORMATION
  Report Type: 
  Country: None (occurrence: None)
  Receive Date: 20090929
  Receipt Date: 20090922
  Transmission Date: 20100115
  Serious: Yes (Life-Threatening, Hospitalization, Other)
  Sender: FDA-Public Use
  Company Number: DE-ABBOTT-09P-062-0598873-00

PATIENT
  Sex: Female
  Weight: 99 kg

DRUGS (6)
  1. HUMIRA [Suspect]
     Indication: RHEUMATOID ARTHRITIS
     Route: 058
     Dates: start: 20080701
  2. FOLIC ACID [Concomitant]
     Indication: RHEUMATOID ARTHRITIS
  3. METHOTREXATE [Concomitant]
     Indication: RHEUMATOID ARTHRITIS
  4. PANTOPRAZOLE SODIUM [Concomitant]
     Indication: DRUG USE FOR UNKNOWN INDICATION
     Route: 048
  5. SIMVASTATIN [Concomitant]
     Indication: DRUG USE FOR UNKNOWN INDICATION
     Route: 048
  6. LERCANIDIPINE [Concomitant]
     Indication: HYPERTENSION
     Route: 048

REACTIONS (9)
  - BLOOD CHOLESTEROL INCREASED [None]
  - CEREBRAL ISCHAEMIA [None]
  - CEREBROVASCULAR ACCIDENT [None]
  - HEART VALVE INCOMPETENCE [None]
  - HEMIPLEGIA [None]
  - HYPERTENSION [None]
  - NERVOUS SYSTEM DISORDER [None]
  - PANCREATIC ENLARGEMENT [None]
  - SPEECH DISORDER [None]
